FAERS Safety Report 22257894 (Version 6)
Quarter: 2024Q3

REPORT INFORMATION
  Report Type: Report from Study
  Country: US (occurrence: US)
  Receive Date: 20230427
  Receipt Date: 20240704
  Transmission Date: 20241017
  Serious: Yes (Hospitalization, Other)
  Sender: NOVARTIS
  Company Number: US-002147023-NVSC2023US090637

PATIENT
  Sex: Male

DRUGS (1)
  1. KESIMPTA [Suspect]
     Active Substance: OFATUMUMAB
     Indication: Product used for unknown indication
     Dosage: UNK
     Route: 065
     Dates: start: 20230405

REACTIONS (12)
  - Condition aggravated [Unknown]
  - Primary progressive multiple sclerosis [Unknown]
  - Pain [Unknown]
  - Fatigue [Unknown]
  - Feeling abnormal [Unknown]
  - Muscle spasms [Unknown]
  - Mobility decreased [Unknown]
  - Weight decreased [Unknown]
  - Gait disturbance [Unknown]
  - Muscle atrophy [Unknown]
  - Drug effect less than expected [Unknown]
  - Central nervous system lesion [Unknown]
